FAERS Safety Report 11542791 (Version 1)
Quarter: 2015Q3

REPORT INFORMATION
  Report Type: Report from Study
  Country: CA (occurrence: CA)
  Receive Date: 20150923
  Receipt Date: 20150923
  Transmission Date: 20151125
  Serious: Yes (Other)
  Sender: FDA-Public Use
  Company Number: CA-BAYER-2015-423441

PATIENT
  Sex: Female

DRUGS (1)
  1. ASPIRIN. [Suspect]
     Active Substance: ASPIRIN
     Dosage: 81 MG, QD DURING PREGNANCY (STARTED IN FIRST TRIMESTER)

REACTIONS (2)
  - Exposure during pregnancy [None]
  - Pre-eclampsia [None]
